FAERS Safety Report 6599693-2 (Version None)
Quarter: 2010Q1

REPORT INFORMATION
  Report Type: 
  Country: None (occurrence: None)
  Receive Date: 20100224
  Receipt Date: 20100216
  Transmission Date: 20100710
  Serious: Yes (Hospitalization)
  Sender: FDA-Public Use
  Company Number: ZA-ABBOTT-10P-143-0626615-00

PATIENT
  Age: 71 Year
  Sex: Male

DRUGS (12)
  1. EPILIM TABLETS [Suspect]
     Indication: BIPOLAR DISORDER
     Route: 048
  2. EPILIM TABLETS [Suspect]
     Indication: AGGRESSION
  3. DORMONOCT [Suspect]
     Indication: BIPOLAR DISORDER
     Route: 048
  4. DORMONOCT [Suspect]
     Indication: AGGRESSION
  5. GEODON [Suspect]
     Indication: BIPOLAR DISORDER
     Route: 048
  6. GEODON [Suspect]
     Indication: AGGRESSION
     Route: 048
  7. AMIODARONE HCL [Suspect]
     Indication: DRUG USE FOR UNKNOWN INDICATION
  8. ECOTRIN [Suspect]
     Indication: DRUG USE FOR UNKNOWN INDICATION
  9. SIMVASTATIN [Suspect]
     Indication: DRUG USE FOR UNKNOWN INDICATION
  10. ARICEPT [Suspect]
     Indication: DRUG USE FOR UNKNOWN INDICATION
  11. URIZONE [Suspect]
     Indication: DRUG USE FOR UNKNOWN INDICATION
  12. CAMCOLIT [Suspect]
     Indication: DRUG USE FOR UNKNOWN INDICATION

REACTIONS (1)
  - ATRIAL FIBRILLATION [None]
